FAERS Safety Report 15232302 (Version 11)
Quarter: 2020Q3

REPORT INFORMATION
  Report Type: Spontaneous
  Country: NL (occurrence: NL)
  Receive Date: 20180802
  Receipt Date: 20200819
  Transmission Date: 20201102
  Serious: Yes (Hospitalization)
  Sender: FDA-Public Use
  Company Number: PHHY2018NL061559

PATIENT
  Age: 77 Year
  Sex: Female
  Weight: 63 kg

DRUGS (11)
  1. ZOPICLONE [Concomitant]
     Active Substance: ZOPICLONE
     Indication: PRODUCT USED FOR UNKNOWN INDICATION
     Dosage: UNK
     Route: 065
  2. ROPINIROLE. [Suspect]
     Active Substance: ROPINIROLE
     Indication: PRODUCT USED FOR UNKNOWN INDICATION
     Dosage: UNK
     Route: 065
  3. DUODOPA [Suspect]
     Active Substance: CARBIDOPA\LEVODOPA
     Indication: PARKINSON^S DISEASE
     Dosage: UNK (MD: 9.5, CD: 2.5, ED: 2.0, CND: 1.6, END: 1.0)
     Route: 050
     Dates: start: 20180528
  4. ZOPICLONE [Concomitant]
     Active Substance: ZOPICLONE
     Route: 065
  5. DUODOPA [Suspect]
     Active Substance: CARBIDOPA\LEVODOPA
     Dosage: UNK (CD: 2.7 ML, CND: 1.9 ML)
     Route: 050
  6. REQUIP [Concomitant]
     Active Substance: ROPINIROLE HYDROCHLORIDE
     Indication: PRODUCT USED FOR UNKNOWN INDICATION
     Dosage: UNK
     Route: 065
  7. REQUIP [Concomitant]
     Active Substance: ROPINIROLE HYDROCHLORIDE
     Route: 065
  8. DUODOPA [Suspect]
     Active Substance: CARBIDOPA\LEVODOPA
     Dosage: UNK (MD: 8.5, CD: 3.1, ED: 3, CND: 2.3)
     Route: 050
  9. DUODOPA [Suspect]
     Active Substance: CARBIDOPA\LEVODOPA
     Dosage: UNK (MD 8.5 ML; CD 3.5 ML/HR; ED 3.0 ML, NIGHT PUMP: CD 2.5 ML/HR; EXTRA DOSE 2.0 ML)
     Route: 050
  10. DUODOPA [Suspect]
     Active Substance: CARBIDOPA\LEVODOPA
     Dosage: UNK (MD: 8.5, CD: 3.3, ED: 3, CND: 2.5, END: 224 HOUR ADMINISTRATION)
     Route: 050
  11. DUODOPA [Suspect]
     Active Substance: CARBIDOPA\LEVODOPA
     Dosage: CD 4.1 ED 3.0 MD 8.5 NIGHT: CDN 2.5 ED 2.0
     Route: 050

REACTIONS (68)
  - Fluid intake reduced [Recovered/Resolved]
  - Cognitive disorder [Recovered/Resolved]
  - Purulence [Not Recovered/Not Resolved]
  - Gait disturbance [Recovered/Resolved]
  - Abdominal pain [Recovered/Resolved]
  - Depressed mood [Recovered/Resolved]
  - Stoma complication [Unknown]
  - Decreased appetite [Unknown]
  - Stoma site erythema [Recovered/Resolved]
  - Confusional state [Not Recovered/Not Resolved]
  - Therapeutic product effect incomplete [Recovered/Resolved]
  - Poor quality sleep [Not Recovered/Not Resolved]
  - Insomnia [Unknown]
  - Behaviour disorder [Not Recovered/Not Resolved]
  - Muscle rigidity [Not Recovered/Not Resolved]
  - Fall [Recovered/Resolved]
  - Stoma site pain [Recovered/Resolved]
  - Feeling abnormal [Recovered/Resolved]
  - Depression [Not Recovered/Not Resolved]
  - Gait inability [Not Recovered/Not Resolved]
  - Therapeutic product effect variable [Not Recovered/Not Resolved]
  - Anal incontinence [Not Recovered/Not Resolved]
  - Pain [Unknown]
  - Hyperkinesia [Recovered/Resolved]
  - Memory impairment [Recovered/Resolved]
  - Psychiatric symptom [Not Recovered/Not Resolved]
  - Incorrect dose administered [Not Recovered/Not Resolved]
  - On and off phenomenon [Recovered/Resolved]
  - Tremor [Unknown]
  - Hyperkinesia [Unknown]
  - Freezing phenomenon [Not Recovered/Not Resolved]
  - Stoma site discharge [Recovered/Resolved]
  - Memory impairment [Not Recovered/Not Resolved]
  - Hypophagia [Recovered/Resolved]
  - Nocturia [Not Recovered/Not Resolved]
  - Condition aggravated [Not Recovered/Not Resolved]
  - Abnormal behaviour [Not Recovered/Not Resolved]
  - Emotional disorder [Not Recovered/Not Resolved]
  - Mental disorder [Not Recovered/Not Resolved]
  - Aphasia [Not Recovered/Not Resolved]
  - Malaise [Recovered/Resolved]
  - Bradykinesia [Not Recovered/Not Resolved]
  - Pollakiuria [Not Recovered/Not Resolved]
  - Nausea [Not Recovered/Not Resolved]
  - Abnormal faeces [Recovered/Resolved]
  - Restless legs syndrome [Not Recovered/Not Resolved]
  - Restlessness [Not Recovered/Not Resolved]
  - Cognitive disorder [Not Recovered/Not Resolved]
  - Unevaluable event [Unknown]
  - Sleep disorder [Recovering/Resolving]
  - Weight decreased [Not Recovered/Not Resolved]
  - Hallucination [Not Recovered/Not Resolved]
  - Hypotension [Not Recovered/Not Resolved]
  - Dyskinesia [Recovered/Resolved]
  - Personality disorder [Not Recovered/Not Resolved]
  - Fibroma [Not Recovered/Not Resolved]
  - Gait disturbance [Unknown]
  - Disturbance in attention [Not Recovered/Not Resolved]
  - Weight decreased [Recovered/Resolved]
  - Anxiety [Not Recovered/Not Resolved]
  - Dyskinesia [Not Recovered/Not Resolved]
  - Dizziness [Not Recovered/Not Resolved]
  - Therapeutic product effect decreased [Recovering/Resolving]
  - Gastrointestinal bacterial infection [Recovered/Resolved]
  - Fibroma [Recovered/Resolved]
  - Impaired self-care [Not Recovered/Not Resolved]
  - On and off phenomenon [Unknown]
  - Tension [Not Recovered/Not Resolved]

NARRATIVE: CASE EVENT DATE: 2018
